FAERS Safety Report 11009830 (Version 2)
Quarter: 2015Q2

REPORT INFORMATION
  Report Type: Report from Study
  Country: KR (occurrence: KR)
  Receive Date: 20150410
  Receipt Date: 20150507
  Transmission Date: 20150821
  Serious: Yes (Death, Hospitalization, Other)
  Sender: FDA-Public Use
  Company Number: KR-BAXTER-2015BAX017768

PATIENT
  Age: 60 Year
  Sex: Female
  Weight: 45 kg

DRUGS (1)
  1. PHYSIONEAL 1.5% [Suspect]
     Active Substance: CALCIUM CHLORIDE\DEXTROSE\MAGNESIUM CHLORIDE\SODIUM CHLORIDE SOLUTION
     Indication: CHRONIC KIDNEY DISEASE
     Route: 033
     Dates: start: 20140804, end: 201504

REACTIONS (5)
  - Death [Fatal]
  - Hypotension [Not Recovered/Not Resolved]
  - Condition aggravated [Unknown]
  - Congenital cystic kidney disease [Unknown]
  - Disease complication [Unknown]

NARRATIVE: CASE EVENT DATE: 201504
